FAERS Safety Report 7414980-3 (Version None)
Quarter: 2011Q2

REPORT INFORMATION
  Report Type: 
  Country: None (occurrence: None)
  Receive Date: 20110414
  Receipt Date: 20110407
  Transmission Date: 20111010
  Serious: Yes (Hospitalization, Other)
  Sender: FDA-Public Use
  Company Number: US-CEPHALON-US024742

PATIENT
  Sex: Male

DRUGS (5)
  1. KLONOPIN [Concomitant]
     Dosage: UNKNOWN
  2. PROVIGIL [Suspect]
     Route: 048
  3. TRILEPTAL [Concomitant]
     Dosage: UNKNOWN
  4. AVAPRO [Concomitant]
  5. DILANTIN [Concomitant]
     Dosage: UNKNOWN

REACTIONS (6)
  - APPETITE DISORDER [None]
  - CONFUSIONAL STATE [None]
  - FATIGUE [None]
  - CONVULSION [None]
  - DRUG DISPENSING ERROR [None]
  - IRRITABILITY [None]
